FAERS Safety Report 21797170 (Version 4)
Quarter: 2023Q1

REPORT INFORMATION
  Report Type: Spontaneous
  Country: US (occurrence: US)
  Receive Date: 20221230
  Receipt Date: 20230323
  Transmission Date: 20230417
  Serious: No
  Sender: FDA-Public Use
  Company Number: US-BIOVITRUM-2022US15598

PATIENT
  Age: 4 Month
  Sex: Female
  Weight: 6 kg

DRUGS (3)
  1. SYNAGIS [Suspect]
     Active Substance: PALIVIZUMAB
     Indication: Pulmonary malformation
     Dosage: 100 MG SDV/INJ PF 1 ML 1^S?ONCE MONTHLY
     Dates: start: 20221202
  2. D-VI-SOL [Concomitant]
     Indication: Product used for unknown indication
     Dosage: 10(400)/ML DROPS
  3. HYDROCORTISONE [Concomitant]
     Active Substance: HYDROCORTISONE
     Indication: Product used for unknown indication
     Dosage: 0.5 % CREAM(GM)

REACTIONS (6)
  - Pyrexia [Recovered/Resolved]
  - Nasal congestion [Recovered/Resolved]
  - Productive cough [Recovered/Resolved]
  - Poor feeding infant [Recovered/Resolved]
  - Erythema [Recovered/Resolved]
  - Pharyngeal erythema [Recovered/Resolved]

NARRATIVE: CASE EVENT DATE: 20221227
